FAERS Safety Report 15325967 (Version 1)
Quarter: 2018Q3

REPORT INFORMATION
  Report Type: Spontaneous
  Country: US (occurrence: US)
  Receive Date: 20180823
  Receipt Date: 20180823
  Transmission Date: 20181010
  Serious: Yes (Disabling)
  Sender: FDA-Public Use
  Company Number: None

PATIENT
  Sex: Male

DRUGS (1)
  1. MIRALAX [Suspect]
     Active Substance: POLYETHYLENE GLYCOL 3350
     Indication: CONSTIPATION
     Dates: start: 20060101, end: 20130401

REACTIONS (11)
  - Vomiting [None]
  - Tic [None]
  - Anger [None]
  - Mania [None]
  - Dyskinesia [None]
  - Abnormal behaviour [None]
  - Thinking abnormal [None]
  - Dark circles under eyes [None]
  - Dysarthria [None]
  - Attention deficit/hyperactivity disorder [None]
  - Autism spectrum disorder [None]
